FAERS Safety Report 6668220-3 (Version None)
Quarter: 2010Q2

REPORT INFORMATION
  Report Type: 
  Country: None (occurrence: None)
  Receive Date: 20100406
  Receipt Date: 20100331
  Transmission Date: 20101027
  Serious: Yes (Hospitalization)
  Sender: FDA-Public Use
  Company Number: FR-KINGPHARMUSA00001-K201000376

PATIENT
  Age: 87 Year
  Sex: Female

DRUGS (2)
  1. ALTACE [Suspect]
     Dosage: UNK
  2. REMERGIL [Suspect]
     Indication: DEPRESSION
     Dosage: 15 MG, QD
     Route: 048
     Dates: start: 20100204, end: 20100204

REACTIONS (3)
  - ANAPHYLACTIC SHOCK [None]
  - DYSPNOEA [None]
  - RESPIRATORY DISORDER [None]
